FAERS Safety Report 5150711-8 (Version None)
Quarter: 2006Q4

REPORT INFORMATION
  Report Type: 
  Country: None (occurrence: None)
  Receive Date: 20061114
  Receipt Date: 20061109
  Transmission Date: 20070319
  Serious: Yes (Death)
  Sender: FDA-Public Use
  Company Number: GB-SANOFI-SYNTHELABO-F01200602305

PATIENT
  Sex: Male
  Weight: 74 kg

DRUGS (5)
  1. CETUXIMAB [Suspect]
     Route: 042
     Dates: start: 20060901, end: 20060901
  2. CETUXIMAB [Suspect]
     Route: 042
     Dates: start: 20060907, end: 20060907
  3. FLUOROURACIL [Suspect]
     Route: 041
     Dates: start: 20060901, end: 20060901
  4. FLUOROURACIL [Suspect]
     Route: 042
     Dates: start: 20060901, end: 20060902
  5. OXALIPLATIN [Suspect]
     Indication: COLORECTAL CANCER METASTATIC
     Route: 041
     Dates: start: 20060901, end: 20060901

REACTIONS (10)
  - BRONCHOPNEUMONIA [None]
  - CATHETER SEPSIS [None]
  - GENERAL PHYSICAL HEALTH DETERIORATION [None]
  - INFECTION [None]
  - LOSS OF CONSCIOUSNESS [None]
  - NEUTROPENIA [None]
  - PNEUMONIA [None]
  - PYREXIA [None]
  - RESPIRATORY FAILURE [None]
  - STAPHYLOCOCCAL BACTERAEMIA [None]
